FAERS Safety Report 9280831 (Version 2)
Quarter: 2013Q3

REPORT INFORMATION
  Report Type: Spontaneous
  Country: US (occurrence: None)
  Receive Date: 20130502
  Receipt Date: 20130717
  Transmission Date: 20140515
  Serious: Yes (Congenital Anomaly)
  Sender: FDA-Public Use
  Company Number: KAD201304-000486

PATIENT
  Age: 25 Year
  Sex: Female

DRUGS (5)
  1. RIBAVIRIN (RIBAVIRIN) [Suspect]
     Route: 048
     Dates: start: 20120702, end: 20121105
  2. PEGASYS (PEGINTERFERON ALFA-2A) [Suspect]
     Route: 058
     Dates: start: 20120702, end: 20121105
  3. SUBUTEX [Suspect]
     Indication: DRUG ABUSE
  4. SEROQUEL [Suspect]
     Indication: PSYCHIATRIC SYMPTOM
  5. KLONOPIN (CLONAZEPAM) (TABLETS) [Suspect]
     Indication: ANXIETY

REACTIONS (2)
  - Maternal exposure before pregnancy [None]
  - Prenatal screening test abnormal [None]
